FAERS Safety Report 21857322 (Version 2)
Quarter: 2023Q1

REPORT INFORMATION
  Report Type: Spontaneous
  Country: JP (occurrence: JP)
  Receive Date: 20230113
  Receipt Date: 20230125
  Transmission Date: 20230417
  Serious: No
  Sender: FDA-Public Use
  Company Number: JP-UCBJ-CD202300368UCBPHAPROD

PATIENT
  Age: 83 Year
  Sex: Male

DRUGS (1)
  1. VIMPAT [Suspect]
     Active Substance: LACOSAMIDE
     Indication: Epilepsy
     Dosage: 100 MILLIGRAM, 12 HOUR
     Route: 048

REACTIONS (1)
  - Drug ineffective [Unknown]
